FAERS Safety Report 4942797-8 (Version None)
Quarter: 2006Q1

REPORT INFORMATION
  Report Type: 
  Country: None (occurrence: None)
  Receive Date: 20060314
  Receipt Date: 20060302
  Transmission Date: 20060701
  Serious: Yes (Death, Hospitalization, Other)
  Sender: FDA-Public Use
  Company Number: FR-JNJFOC-20060104683

PATIENT
  Age: 56 Year
  Sex: Female

DRUGS (3)
  1. CAELYX [Suspect]
     Route: 042
  2. CAELYX [Suspect]
     Route: 042
  3. METHYLPREDNISOLONE [Concomitant]

REACTIONS (3)
  - BREAST CANCER METASTATIC [None]
  - CARDIAC FAILURE [None]
  - MITRAL VALVE INCOMPETENCE [None]
